FAERS Safety Report 12601078 (Version 1)
Quarter: 2016Q3

REPORT INFORMATION
  Report Type: Spontaneous
  Country: US (occurrence: US)
  Receive Date: 20160728
  Receipt Date: 20160728
  Transmission Date: 20161109
  Serious: Yes (Other)
  Sender: FDA-Public Use
  Company Number: US-JNJCP-30000346172

PATIENT
  Sex: Female

DRUGS (2)
  1. UNSPECIFIED HOME REMEDIES [Suspect]
     Active Substance: UNSPECIFIED INGREDIENT
     Route: 065
  2. NEUTROGENA RAPID WRINKLE REPAIR MOISTURIZER SUNSCREEN BROAD SPECTRUM SPF30 [Suspect]
     Active Substance: AVOBENZONE\HOMOSALATE\OCTISALATE\OCTOCRYLENE
     Indication: PRODUCT USED FOR UNKNOWN INDICATION
     Dosage: USED FOR FIVE DAYS, LESS THAN A WEEK
     Route: 061

REACTIONS (5)
  - Hypersensitivity [Unknown]
  - Pharyngeal oedema [None]
  - Lip swelling [None]
  - Application site infection [None]
  - Application site hypersensitivity [None]
